FAERS Safety Report 21179131 (Version 1)
Quarter: 2022Q3

REPORT INFORMATION
  Report Type: Spontaneous
  Country: US (occurrence: None)
  Receive Date: 20220805
  Receipt Date: 20220805
  Transmission Date: 20221027
  Serious: Yes (Hospitalization)
  Sender: FDA-Public Use
  Company Number: None

PATIENT
  Age: 53 Year
  Sex: Male
  Weight: 83.25 kg

DRUGS (1)
  1. MAGNESIUM CITRATE ORAL CHERRY FLAVOR [Suspect]
     Active Substance: MAGNESIUM CITRATE
     Indication: Prostatic operation
     Dates: start: 20220714, end: 20220714

REACTIONS (7)
  - Recalled product administered [None]
  - Hypoaesthesia [None]
  - Vomiting [None]
  - Diarrhoea [None]
  - Hypotension [None]
  - Transient ischaemic attack [None]
  - Blood sodium decreased [None]

NARRATIVE: CASE EVENT DATE: 20220714
